FAERS Safety Report 24804229 (Version 1)
Quarter: 2025Q1

REPORT INFORMATION
  Report Type: Spontaneous
  Country: US (occurrence: US)
  Receive Date: 20250103
  Receipt Date: 20250103
  Transmission Date: 20250409
  Serious: Yes (Other)
  Sender: SANOFI AVENTIS
  Company Number: US-SA-2025SA002090

PATIENT
  Age: 71 Year
  Sex: Female

DRUGS (1)
  1. DUPIXENT [Suspect]
     Active Substance: DUPILUMAB
     Indication: Dermatitis atopic
     Dosage: 300 MG, QOW
     Route: 058

REACTIONS (9)
  - Pulmonary hypertension [Unknown]
  - Pyrexia [Unknown]
  - Blister [Unknown]
  - Flushing [Unknown]
  - Dyspnoea [Unknown]
  - Rhinorrhoea [Unknown]
  - Fatigue [Unknown]
  - Urticaria [Unknown]
  - Eczema [Unknown]
